FAERS Safety Report 13238746 (Version 1)
Quarter: 2017Q1

REPORT INFORMATION
  Report Type: Spontaneous
  Country: US (occurrence: US)
  Receive Date: 20170216
  Receipt Date: 20170216
  Transmission Date: 20170428
  Serious: Yes (Other)
  Sender: FDA-Public Use
  Company Number: US-CLINIGEN GROUP PLC/ CLINIGEN HEALTHCARE LTD-E2B_00002197

PATIENT
  Sex: Female

DRUGS (2)
  1. ETHYOL [Suspect]
     Active Substance: AMIFOSTINE
     Indication: MYELODYSPLASTIC SYNDROME
     Dosage: 5 ML TIW  CONTINUING
     Route: 058
     Dates: start: 20030106
  2. SOTALOL. [Concomitant]
     Active Substance: SOTALOL
     Indication: ARRHYTHMIA
     Dosage: UNKNOWN  CONTINUING
     Route: 065
     Dates: start: 200206

REACTIONS (3)
  - Arrhythmia [Unknown]
  - Injection site bruising [Unknown]
  - Injection site rash [Not Recovered/Not Resolved]

NARRATIVE: CASE EVENT DATE: 20030120
